FAERS Safety Report 6886339-9 (Version None)
Quarter: 2010Q3

REPORT INFORMATION
  Report Type: 
  Country: None (occurrence: None)
  Receive Date: 20100729
  Receipt Date: 20080306
  Transmission Date: 20110219
  Serious: Yes (Other)
  Sender: FDA-Public Use
  Company Number: US-PFIZER INC-2008013433

PATIENT
  Sex: Female
  Weight: 70.454 kg

DRUGS (5)
  1. CELEBREX [Suspect]
     Indication: OSTEOARTHRITIS
     Dates: start: 19990101
  2. ACETYLSALICYLIC ACID SRT [Concomitant]
  3. QUINAPRIL [Concomitant]
     Indication: HYPERTENSION
  4. DEMADEX [Concomitant]
  5. POTASSIUM CHLORIDE [Concomitant]

REACTIONS (2)
  - CATARACT [None]
  - QUALITY OF LIFE DECREASED [None]
